FAERS Safety Report 12666412 (Version 1)
Quarter: 2016Q3

REPORT INFORMATION
  Report Type: Spontaneous
  Country: DK (occurrence: KR)
  Receive Date: 20160818
  Receipt Date: 20160818
  Transmission Date: 20161109
  Serious: Yes (Hospitalization)
  Sender: FDA-Public Use
  Company Number: KR-FRI-1000086892

PATIENT
  Age: 33 Year
  Sex: Male

DRUGS (1)
  1. ESCITALOPRAM [Suspect]
     Active Substance: ESCITALOPRAM OXALATE
     Indication: HISTIOCYTOSIS HAEMATOPHAGIC
     Dosage: 2.5 MG
     Route: 048
     Dates: start: 20151022, end: 20151029

REACTIONS (2)
  - Depressed level of consciousness [Recovered/Resolved]
  - Product use issue [Unknown]

NARRATIVE: CASE EVENT DATE: 20151029
